FAERS Safety Report 9643002 (Version 5)
Quarter: 2014Q1

REPORT INFORMATION
  Report Type: Report from Study
  Country: US (occurrence: US)
  Receive Date: 20131024
  Receipt Date: 20140219
  Transmission Date: 20141002
  Serious: Yes (Hospitalization)
  Sender: FDA-Public Use
  Company Number: US-JNJFOC-20131010948

PATIENT
  Age: 15 Year
  Sex: Female
  Weight: 53.3 kg

DRUGS (21)
  1. REMICADE [Suspect]
     Indication: CROHN^S DISEASE
     Route: 042
     Dates: start: 20131226
  2. REMICADE [Suspect]
     Indication: CROHN^S DISEASE
     Route: 042
     Dates: start: 20111215
  3. MIRALAX [Suspect]
     Indication: PRODUCT USED FOR UNKNOWN INDICATION
     Route: 065
  4. FERROUS SULPHATE [Concomitant]
     Indication: PRODUCT USED FOR UNKNOWN INDICATION
     Route: 065
  5. DULCOLAX [Concomitant]
     Indication: PRODUCT USED FOR UNKNOWN INDICATION
     Route: 065
  6. 5-ASA [Concomitant]
     Route: 065
  7. PREDNISONE [Concomitant]
     Route: 065
  8. VITAMIN D [Concomitant]
     Route: 065
  9. MULTIVITAMINS [Concomitant]
     Route: 065
  10. ESOMEPRAZOLE [Concomitant]
     Route: 065
  11. LORYNA [Concomitant]
     Route: 065
  12. AMPICILLIN [Concomitant]
     Route: 065
  13. GENTAMICIN [Concomitant]
     Route: 065
  14. HEPARIN [Concomitant]
     Route: 065
  15. ACETAMINOPHEN [Concomitant]
     Route: 065
  16. ZOFRAN [Concomitant]
     Route: 065
  17. BENADRYL [Concomitant]
     Route: 065
  18. NEXIUM [Concomitant]
     Route: 065
  19. ALBUTEROL [Concomitant]
     Route: 065
  20. FLINSTONES MULTIVITAMIN [Concomitant]
     Route: 065
  21. VITAMIN D3 [Concomitant]
     Route: 065

REACTIONS (4)
  - Vomiting [Recovered/Resolved]
  - Pyrexia [Recovered/Resolved]
  - Abdominal abscess [Recovered/Resolved with Sequelae]
  - Abdominal abscess [Recovered/Resolved with Sequelae]
